FAERS Safety Report 20204431 (Version 2)
Quarter: 2022Q1

REPORT INFORMATION
  Report Type: Spontaneous
  Country: FR (occurrence: FR)
  Receive Date: 20211220
  Receipt Date: 20220113
  Transmission Date: 20220424
  Serious: Yes (Other)
  Sender: FDA-Public Use
  Company Number: None

PATIENT
  Age: 22 Year
  Sex: Male

DRUGS (3)
  1. DIAZEPAM [Suspect]
     Active Substance: DIAZEPAM
     Dosage: UNSPECIFIED DOSE
     Route: 048
  2. PREGABALIN [Suspect]
     Active Substance: PREGABALIN
     Dosage: UNSPECIFIED DOSE
     Route: 048
  3. ALCOHOL [Suspect]
     Active Substance: ALCOHOL
     Dosage: UNSPECIFIED DOSE
     Route: 048

REACTIONS (3)
  - Altered state of consciousness [Recovered/Resolved]
  - Substance abuse [Unknown]
  - Restlessness [Recovered/Resolved]

NARRATIVE: CASE EVENT DATE: 20211113
